FAERS Safety Report 23945569 (Version 1)
Quarter: 2024Q2

REPORT INFORMATION
  Report Type: Spontaneous
  Country: IT (occurrence: IT)
  Receive Date: 20240606
  Receipt Date: 20240606
  Transmission Date: 20240716
  Serious: Yes (Hospitalization)
  Sender: FDA-Public Use
  Company Number: None

PATIENT
  Age: 61 Year
  Sex: Male
  Weight: 80 kg

DRUGS (2)
  1. VANCOMYCIN [Suspect]
     Active Substance: VANCOMYCIN
     Indication: Intervertebral discitis
     Dosage: 500 MILLIGRAM, Q8H (VANCOMYCIN 500MG + 250ML SALINE SOLUTION EVERY 8 HOURS)
     Route: 042
     Dates: start: 20240202, end: 20240227
  2. CEFTRIAXONE [Suspect]
     Active Substance: CEFTRIAXONE\CEFTRIAXONE SODIUM
     Indication: Intervertebral discitis
     Dosage: UNK
     Route: 065

REACTIONS (2)
  - Spinal pain [Recovered/Resolved]
  - Neutropenia [Recovered/Resolved with Sequelae]

NARRATIVE: CASE EVENT DATE: 20240227
